FAERS Safety Report 7912730-5 (Version None)
Quarter: 2011Q4

REPORT INFORMATION
  Report Type: 
  Country: None (occurrence: None)
  Receive Date: 20111114
  Receipt Date: 20111102
  Transmission Date: 20120403
  Serious: Yes (Hospitalization)
  Sender: FDA-Public Use
  Company Number: PL-PFIZER INC-2011237193

PATIENT
  Age: 58 Year
  Sex: Male
  Weight: 94 kg

DRUGS (4)
  1. TEMSIROLIMUS [Suspect]
     Indication: MANTLE CELL LYMPHOMA
     Dosage: 75 MG, ONCE WEEKLY
     Route: 042
     Dates: start: 20110905, end: 20111010
  2. SIMVASTATIN [Concomitant]
     Indication: HYPERCHOLESTEROLAEMIA
     Dosage: UNK
  3. TAMIFLU [Concomitant]
     Indication: UPPER RESPIRATORY TRACT INFECTION
     Dosage: UNK
     Dates: start: 20110911, end: 20110922
  4. METOPROLOL [Concomitant]
     Indication: HYPERTENSION
     Dosage: UNK
     Dates: start: 19950101, end: 20110919

REACTIONS (2)
  - ACIDOSIS [None]
  - HYPERTHYROIDISM [None]
